FAERS Safety Report 8363350-2 (Version None)
Quarter: 2012Q1

REPORT INFORMATION
  Report Type: 
  Country: None (occurrence: None)
  Receive Date: 20120323
  Receipt Date: 20110517
  Transmission Date: 20120608
  Serious: Yes (Other)
  Sender: FDA-Public Use
  Company Number: 163-21880-11052299

PATIENT
  Age: 76 Year
  Sex: Female

DRUGS (2)
  1. REVLIMID [Suspect]
     Indication: MULTIPLE MYELOMA
     Dosage: 5 MG, 1 IN 1D, PO, 5 MG, EVERY DAY FOR 21 DAYS THEN 7 DAYS OFF, PO
     Route: 048
     Dates: start: 20100801
  2. REVLIMID [Suspect]
     Indication: MULTIPLE MYELOMA
     Dosage: 5 MG, 1 IN 1D, PO, 5 MG, EVERY DAY FOR 21 DAYS THEN 7 DAYS OFF, PO
     Route: 048
     Dates: start: 20110413

REACTIONS (1)
  - WHITE BLOOD CELL COUNT DECREASED [None]
